FAERS Safety Report 23662039 (Version 2)
Quarter: 2025Q1

REPORT INFORMATION
  Report Type: Spontaneous
  Country: US (occurrence: US)
  Receive Date: 20240322
  Receipt Date: 20250328
  Transmission Date: 20250409
  Serious: No
  Sender: AMNEAL
  Company Number: US-AMNEAL PHARMACEUTICALS-2023-AMRX-04243

PATIENT
  Sex: Female

DRUGS (1)
  1. ESTRADIOL TRANSDERMAL SYSTEM [Suspect]
     Active Substance: ESTRADIOL
     Indication: Menopause
     Route: 062
     Dates: start: 20231113

REACTIONS (12)
  - Night sweats [Recovering/Resolving]
  - Palpitations [Recovering/Resolving]
  - Pain [Recovering/Resolving]
  - Depressed mood [Recovering/Resolving]
  - Hot flush [Recovering/Resolving]
  - Anxiety [Recovering/Resolving]
  - Back pain [Not Recovered/Not Resolved]
  - Vaginal haemorrhage [Not Recovered/Not Resolved]
  - Haemorrhage [Not Recovered/Not Resolved]
  - Abdominal discomfort [Not Recovered/Not Resolved]
  - Drug ineffective [Unknown]
  - Product substitution issue [Unknown]
